FAERS Safety Report 7024219-9 (Version None)
Quarter: 2010Q4

REPORT INFORMATION
  Report Type: 
  Country: None (occurrence: None)
  Receive Date: 20101001
  Receipt Date: 20100923
  Transmission Date: 20110411
  Serious: Yes (Other)
  Sender: FDA-Public Use
  Company Number: US-ROCHE-729659

PATIENT
  Age: 63 Year
  Sex: Male

DRUGS (4)
  1. BEVACIZUMAB [Suspect]
     Indication: PRODUCT USED FOR UNKNOWN INDICATION
     Dosage: OVER 30-90 MINUTES ON DAY 1, CYCLE: 21 DAYS, LAST DOSE:09 AUG 2010 (CYCLE 2, DAY 1)
     Route: 042
     Dates: start: 20100721
  2. DOCETAXEL [Suspect]
     Indication: PRODUCT USED FOR UNKNOWN INDICATION
     Dosage: OVER 60 MINUTES ON DAY 1, LAST DOSE: 090 AUG 2010 (CYCLE 2, DAY 1)
     Route: 042
     Dates: start: 20100721
  3. LENALIDOMIDE [Suspect]
     Indication: PRODUCT USED FOR UNKNOWN INDICATION
     Dosage: DAYS 1-14, CYCLE: 21 DAYS, LAST DOSE: 22 AUG 2010 (CYCLE 2, DAY 14)
     Route: 048
     Dates: start: 20100721
  4. PREDNISONE [Suspect]
     Indication: PRODUCT USED FOR UNKNOWN INDICATION
     Dosage: LAST DOSE: 30 AUG 2010 (CYCLE 2, DAY 22)
     Route: 048
     Dates: start: 20100721

REACTIONS (1)
  - OSTEONECROSIS OF JAW [None]
